FAERS Safety Report 7190530-4 (Version None)
Quarter: 2010Q4

REPORT INFORMATION
  Report Type: 
  Country: None (occurrence: None)
  Receive Date: 20101210
  Receipt Date: 20101126
  Transmission Date: 20110411
  Serious: Yes (Death, Other)
  Sender: FDA-Public Use
  Company Number: 2010004689

PATIENT
  Age: 68 Year
  Sex: Male

DRUGS (22)
  1. TARCEVA [Suspect]
     Indication: LUNG NEOPLASM MALIGNANT
     Dosage: (150 MG, QD), ORAL
     Route: 048
     Dates: start: 20101002
  2. FOLIC ACID (FOLIC ACID) (1 MILLIGRAM) [Concomitant]
  3. LORATADINE (LORATADINE) (10 MILLIGRAM) [Concomitant]
  4. SOTALOL HCL (SOTALOL HYDROCHLORIDE) (80 MILLIGRAM) [Concomitant]
  5. NITROGLYCERIN [Concomitant]
  6. ENSURE (ENSURE) [Concomitant]
  7. SERTRALINE HYDROCHLORIDE (SERTRALINE HYDROCHLORIDE) (50 MILLIGRAM) [Concomitant]
  8. TESSALON PERLES (BENZONATATE) (100 MILLIGRAM) [Concomitant]
  9. CLOPIDOGREL BISULFATE (CLOPIDOGREL) (75 MILLIGRAM) [Concomitant]
  10. LISINOPRIL (LISINOPRIL) (10 MILLIGRAM, TABLET) [Concomitant]
  11. GLIMEPIRIDE (GLIMEPIRIDE) (1 MILLIGRAM, TABLET) [Concomitant]
  12. IMMODIUM A-D (2 MILLIGRAM) [Concomitant]
  13. ASA (ACETYLSALICYLIC ACID) (325 MILLIGRAM) [Concomitant]
  14. LIPITOR (ATORVASTATIN) (10 MILLIGRAM) [Concomitant]
  15. MULTI-VITAMIN [Concomitant]
  16. METFORMIN HYDROCHLORIDE (METFORMIN HYDROCHLORIDE) (500 MILLIGRAM, TABL [Concomitant]
  17. TAXOTERE [Concomitant]
  18. NEXIUM (ESOMEPRAZOLE) (40 MILLIGRAM) [Concomitant]
  19. HYDROCODONE BITARTRATE [Concomitant]
  20. MELOXICAM (MELOXICAM) (7.5 MILLIGRAM) [Concomitant]
  21. VOLTAREN (1 PERCENT) [Concomitant]
  22. PREDNISONE TAB [Concomitant]

REACTIONS (12)
  - ATRIAL FIBRILLATION [None]
  - DEHYDRATION [None]
  - DEPRESSION [None]
  - FATIGUE [None]
  - LUNG ADENOCARCINOMA METASTATIC [None]
  - MALIGNANT NEOPLASM PROGRESSION [None]
  - MOUTH ULCERATION [None]
  - NAUSEA [None]
  - ORAL DISCOMFORT [None]
  - PHARYNGEAL ULCERATION [None]
  - RASH [None]
  - RHEUMATOID ARTHRITIS [None]
